FAERS Safety Report 19110676 (Version 5)
Quarter: 2022Q1

REPORT INFORMATION
  Report Type: Report from Study
  Country: US (occurrence: US)
  Receive Date: 20210409
  Receipt Date: 20220322
  Transmission Date: 20220423
  Serious: No
  Sender: FDA-Public Use
  Company Number: NVSC2021US079616

PATIENT
  Sex: Male

DRUGS (10)
  1. ENTRESTO [Suspect]
     Active Substance: SACUBITRIL\VALSARTAN
     Indication: Product used for unknown indication
     Dosage: UNK UNK, BID
     Route: 048
  2. ENTRESTO [Suspect]
     Active Substance: SACUBITRIL\VALSARTAN
     Route: 048
  3. ENTRESTO [Suspect]
     Active Substance: SACUBITRIL\VALSARTAN
     Route: 048
  4. ENTRESTO [Suspect]
     Active Substance: SACUBITRIL\VALSARTAN
     Route: 048
  5. LISINOPRIL [Suspect]
     Active Substance: LISINOPRIL
     Indication: Product used for unknown indication
     Dosage: UNK
     Route: 048
  6. LISINOPRIL [Suspect]
     Active Substance: LISINOPRIL
     Route: 048
  7. LISINOPRIL [Suspect]
     Active Substance: LISINOPRIL
     Route: 048
  8. LISINOPRIL [Suspect]
     Active Substance: LISINOPRIL
     Route: 048
  9. LISINOPRIL [Suspect]
     Active Substance: LISINOPRIL
     Route: 048
  10. SYNTHROID [Concomitant]
     Active Substance: LEVOTHYROXINE SODIUM
     Indication: Product used for unknown indication
     Dosage: UNK UNK, UNKNOWN
     Route: 065

REACTIONS (15)
  - Musculoskeletal chest pain [Unknown]
  - Weight increased [Unknown]
  - Limb injury [Unknown]
  - Decreased activity [Unknown]
  - Plantar fasciitis [Unknown]
  - Thyroid disorder [Unknown]
  - Pain in extremity [Unknown]
  - Hypertension [Unknown]
  - Blood cholesterol increased [Unknown]
  - Flatulence [Unknown]
  - Renal disorder [Unknown]
  - Fatigue [Unknown]
  - Heart valve incompetence [Unknown]
  - Dizziness [Unknown]
  - Hypotension [Unknown]
